FAERS Safety Report 17809728 (Version 1)
Quarter: 2020Q2

REPORT INFORMATION
  Report Type: Spontaneous
  Country: US (occurrence: US)
  Receive Date: 20200520
  Receipt Date: 20200520
  Transmission Date: 20200714
  Serious: Yes (Other)
  Sender: FDA-Public Use
  Company Number: US-TEVA-2020-US-1237100

PATIENT
  Age: 93 Year
  Sex: Male

DRUGS (3)
  1. POTASSIUM CHLORIDE. [Suspect]
     Active Substance: POTASSIUM CHLORIDE
     Route: 065
  2. GABAPENTIN TEVA [Suspect]
     Active Substance: GABAPENTIN
     Dosage: TAKING THIS MEDICATION FOR THE LAST 2-3 YEARS
     Route: 065
  3. LOSARTAN. [Suspect]
     Active Substance: LOSARTAN
     Route: 065

REACTIONS (2)
  - Renal disorder [Unknown]
  - Renal impairment [Unknown]
